FAERS Safety Report 17253747 (Version 1)
Quarter: 2020Q1

REPORT INFORMATION
  Report Type: Spontaneous
  Country: DE (occurrence: DE)
  Receive Date: 20200109
  Receipt Date: 20200109
  Transmission Date: 20200409
  Serious: Yes (Death, Other)
  Sender: FDA-Public Use
  Company Number: DE-MYLANLABS-2020M1002851

PATIENT

DRUGS (4)
  1. QUETIAPINE MYLAN [Suspect]
     Active Substance: QUETIAPINE
     Indication: DEPRESSION
     Dosage: 50 MG, QD
     Route: 048
     Dates: start: 2019
  2. JANUMET [Concomitant]
     Active Substance: METFORMIN HYDROCHLORIDE\SITAGLIPTIN PHOSPHATE
     Indication: DIABETES MELLITUS
     Dosage: UNK
     Route: 065
  3. ESCITALOPRAM GLENMARK [Interacting]
     Active Substance: ESCITALOPRAM OXALATE
     Indication: DEPRESSION
     Dosage: 5 MG, AM
     Route: 048
     Dates: start: 2019, end: 2019
  4. ESCITALOPRAM GLENMARK [Interacting]
     Active Substance: ESCITALOPRAM OXALATE
     Indication: INSOMNIA
     Dosage: UNK

REACTIONS (3)
  - Hypertension [Fatal]
  - Drug interaction [Fatal]
  - Completed suicide [Fatal]

NARRATIVE: CASE EVENT DATE: 2019
